FAERS Safety Report 16329509 (Version 1)
Quarter: 2019Q2

REPORT INFORMATION
  Report Type: Spontaneous
  Country: FR (occurrence: FR)
  Receive Date: 20190520
  Receipt Date: 20190520
  Transmission Date: 20190711
  Serious: Yes (Hospitalization)
  Sender: FDA-Public Use
  Company Number: FR-TEVA-2019-FR-1050981

PATIENT
  Age: 16 Year
  Sex: Female
  Weight: 55 kg

DRUGS (5)
  1. TRAMADOL (CHLORHYDRATE DE) [Suspect]
     Active Substance: TRAMADOL HYDROCHLORIDE
     Indication: POISONING DELIBERATE
     Route: 048
     Dates: start: 20190408, end: 20190408
  2. DAFALGAN CODEINE [Suspect]
     Active Substance: ACETAMINOPHEN\CODEINE PHOSPHATE
     Indication: POISONING DELIBERATE
     Route: 048
     Dates: start: 20190408, end: 20190408
  3. PARACETAMOL [Suspect]
     Active Substance: ACETAMINOPHEN
     Indication: POISONING DELIBERATE
     Route: 048
     Dates: start: 20190408, end: 20190408
  4. KETOPROFENE [Suspect]
     Active Substance: KETOPROFEN
     Indication: POISONING DELIBERATE
     Route: 048
     Dates: start: 20190408, end: 20190408
  5. LEELOO [Concomitant]
     Active Substance: ETHINYL ESTRADIOL\LEVONORGESTREL

REACTIONS (8)
  - Hypokalaemia [Recovered/Resolved]
  - Dizziness [Recovered/Resolved]
  - Gait disturbance [Recovered/Resolved]
  - Generalised tonic-clonic seizure [Recovered/Resolved]
  - Miosis [Recovered/Resolved]
  - Vomiting [Recovered/Resolved]
  - Poisoning deliberate [Recovered/Resolved]
  - Respiratory disorder [Recovered/Resolved]

NARRATIVE: CASE EVENT DATE: 20190408
